FAERS Safety Report 16297747 (Version 1)
Quarter: 2019Q2

REPORT INFORMATION
  Report Type: Report from Study
  Country: FI (occurrence: FI)
  Receive Date: 20190510
  Receipt Date: 20190510
  Transmission Date: 20190711
  Serious: Yes (Death)
  Sender: FDA-Public Use
  Company Number: FI-TEVA-2019-FI-1046675

PATIENT
  Age: 69 Year
  Sex: Female

DRUGS (6)
  1. MIRTAZAPINE. [Concomitant]
     Active Substance: MIRTAZAPINE
  2. ZOPICLONE [Concomitant]
     Active Substance: ZOPICLONE
  3. OXAZEPAM. [Concomitant]
     Active Substance: OXAZEPAM
  4. CITALOPRAM [Suspect]
     Active Substance: CITALOPRAM HYDROBROMIDE
     Route: 065
  5. METOPROLOL. [Suspect]
     Active Substance: METOPROLOL
     Route: 065
  6. VERAPAMIL [Interacting]
     Active Substance: VERAPAMIL HYDROCHLORIDE
     Route: 065

REACTIONS (4)
  - Drug ineffective [Fatal]
  - Electrocardiogram QT prolonged [Fatal]
  - Completed suicide [Fatal]
  - Drug interaction [Fatal]
